FAERS Safety Report 15795073 (Version 1)
Quarter: 2019Q1

REPORT INFORMATION
  Report Type: Spontaneous
  Country: US (occurrence: US)
  Receive Date: 20190107
  Receipt Date: 20190107
  Transmission Date: 20190417
  Serious: Yes (Other)
  Sender: FDA-Public Use
  Company Number: None

PATIENT
  Age: 57 Year
  Sex: Female
  Weight: 101.6 kg

DRUGS (15)
  1. BUTALBITAL, ACETAMINOPHEN, AND CAFFEINE [Concomitant]
     Active Substance: ACETAMINOPHEN\BUTALBITAL\CAFFEINE
  2. CLOBETASOL [Concomitant]
     Active Substance: CLOBETASOL
  3. EPINEPHRINE. [Concomitant]
     Active Substance: EPINEPHRINE
  4. HYDROCODONE BITARTRATE AND ACETAMINOPHEN [Concomitant]
     Active Substance: ACETAMINOPHEN\HYDROCODONE BITARTRATE
  5. METFORMIN [Concomitant]
     Active Substance: METFORMIN HYDROCHLORIDE
  6. DIHYDROERGOTAMINE [Concomitant]
     Active Substance: DIHYDROERGOTAMINE
  7. EMGALITY [Suspect]
     Active Substance: GALCANEZUMAB-GNLM
     Indication: MIGRAINE
     Dosage: ?          OTHER FREQUENCY:MONTHLY;?
     Route: 058
     Dates: start: 20181106, end: 20181206
  8. BOTULINUM TOXIN [Concomitant]
     Active Substance: BOTULINUM TOXIN NOS
  9. CYCLOBENZAPRINE. [Concomitant]
     Active Substance: CYCLOBENZAPRINE
  10. GABAPENTIN. [Concomitant]
     Active Substance: GABAPENTIN
  11. DICYCLOMINE [Concomitant]
     Active Substance: DICYCLOMINE HYDROCHLORIDE
  12. PROMETHAZINE [Concomitant]
     Active Substance: PROMETHAZINE\PROMETHAZINE HYDROCHLORIDE
  13. SIMVASTATIN. [Concomitant]
     Active Substance: SIMVASTATIN
  14. CHOLECALCIFEROL [Concomitant]
     Active Substance: CHOLECALCIFEROL
  15. CLINDAMYCIN. [Concomitant]
     Active Substance: CLINDAMYCIN

REACTIONS (5)
  - Skin exfoliation [None]
  - Rash pruritic [None]
  - Sinusitis [None]
  - Rash [None]
  - Urticaria [None]

NARRATIVE: CASE EVENT DATE: 20181216
